FAERS Safety Report 16761524 (Version 1)
Quarter: 2019Q3

REPORT INFORMATION
  Report Type: Spontaneous
  Country: US (occurrence: US)
  Receive Date: 20190830
  Receipt Date: 20190830
  Transmission Date: 20191005
  Serious: Yes (Other)
  Sender: FDA-Public Use
  Company Number: PHEH2019US035478

PATIENT

DRUGS (1)
  1. FULVESTRANT. [Suspect]
     Active Substance: FULVESTRANT
     Indication: PRODUCT USED FOR UNKNOWN INDICATION
     Dosage: 1 DF, UNK (250 MG/5ML)
     Route: 065

REACTIONS (5)
  - Hypotension [Unknown]
  - Chest discomfort [Unknown]
  - Dizziness [Unknown]
  - Cough [Unknown]
  - Pulmonary congestion [Unknown]
